FAERS Safety Report 24756416 (Version 1)
Quarter: 2024Q4

REPORT INFORMATION
  Report Type: Spontaneous
  Country: GB (occurrence: GB)
  Receive Date: 20241220
  Receipt Date: 20241220
  Transmission Date: 20250114
  Serious: Yes (Disabling, Other)
  Sender: TEVA
  Company Number: GB-MHRA-TPP27424843C8322064YC1733846924812

PATIENT
  Age: 74 Year
  Sex: Male
  Weight: 75 kg

DRUGS (8)
  1. BISOPROLOL [Suspect]
     Active Substance: BISOPROLOL
     Indication: Ill-defined disorder
     Route: 065
     Dates: start: 20241210
  2. EDOXABAN [Concomitant]
     Active Substance: EDOXABAN
     Indication: Ill-defined disorder
     Dates: start: 20240811
  3. SIMVASTATIN [Concomitant]
     Active Substance: SIMVASTATIN
     Indication: Blood cholesterol decreased
     Dates: start: 20240811
  4. SILDENAFIL [Concomitant]
     Active Substance: SILDENAFIL
     Indication: Ill-defined disorder
     Dosage: TAKE ONE 60 MINUTES BEFORE SEXUAL ACTIVITY
     Dates: start: 20240811
  5. DIGOXIN [Concomitant]
     Active Substance: DIGOXIN
     Indication: Ill-defined disorder
     Dates: start: 20240811
  6. SIMBRINZA [Concomitant]
     Active Substance: BRIMONIDINE TARTRATE\BRINZOLAMIDE
     Indication: Ill-defined disorder
     Dosage: ONE DROP TWICE DAILY TO LEFT EYE
     Dates: start: 20240811
  7. ALLOPURINOL [Concomitant]
     Active Substance: ALLOPURINOL
     Indication: Gout
     Dates: start: 20240811
  8. TIMOLOL MALEATE\TRAVOPROST [Concomitant]
     Active Substance: TIMOLOL MALEATE\TRAVOPROST
     Indication: Ill-defined disorder
     Dates: start: 20240811

REACTIONS (5)
  - Tremor [Recovered/Resolved]
  - Suicidal ideation [Recovered/Resolved]
  - Agitated depression [Recovered/Resolved]
  - Decreased appetite [Recovered/Resolved]
  - Nightmare [Recovered/Resolved]

NARRATIVE: CASE EVENT DATE: 20241210
